FAERS Safety Report 11251029 (Version 1)
Quarter: 2015Q3

REPORT INFORMATION
  Report Type: Spontaneous
  Country: US (occurrence: US)
  Receive Date: 20150708
  Receipt Date: 20150708
  Transmission Date: 20151125
  Serious: No
  Sender: FDA-Public Use
  Company Number: US-ELI_LILLY_AND_COMPANY-US201106004286

PATIENT
  Age: 47 Year
  Sex: Female
  Weight: 67.6 kg

DRUGS (9)
  1. VENLAFAXINE HYDROCHLORIDE. [Concomitant]
     Active Substance: VENLAFAXINE HYDROCHLORIDE
     Dosage: 75 MG, QD
     Route: 048
     Dates: start: 20110330
  2. VENLAFAXINE HYDROCHLORIDE. [Concomitant]
     Active Substance: VENLAFAXINE HYDROCHLORIDE
     Dosage: 37.5 MG, QD
     Route: 048
     Dates: start: 20110323, end: 20110329
  3. DEXTROMETHORPHAN W/PHENYLEPHRINE [Concomitant]
     Indication: SINUSITIS
     Dosage: UNK
     Route: 048
  4. CHLORPHENIRAMINE. [Concomitant]
     Active Substance: CHLORPHENIRAMINE
     Indication: SINUSITIS
     Dosage: UNK
     Route: 048
  5. SOMINEX [Concomitant]
     Active Substance: DIPHENHYDRAMINE HYDROCHLORIDE
     Indication: INITIAL INSOMNIA
     Dosage: UNK
  6. PROZAC [Suspect]
     Active Substance: FLUOXETINE HYDROCHLORIDE
     Indication: DEPRESSION
     Dosage: UNK
     Route: 048
     Dates: start: 1995, end: 2001
  7. LEXAPRO [Concomitant]
     Active Substance: ESCITALOPRAM OXALATE
     Dosage: 75 MG, QD
     Route: 048
     Dates: start: 2011, end: 2011
  8. LEXAPRO [Concomitant]
     Active Substance: ESCITALOPRAM OXALATE
     Indication: DEPRESSION
     Dosage: UNK
     Route: 048
     Dates: start: 2003, end: 2011
  9. TRAZODONE [Concomitant]
     Active Substance: TRAZODONE HYDROCHLORIDE
     Indication: SLEEP DISORDER
     Dosage: 150 MG, PRN
     Route: 048

REACTIONS (5)
  - Irritability [Unknown]
  - Anorgasmia [Unknown]
  - Carbon dioxide decreased [Unknown]
  - Weight increased [Unknown]
  - Fatigue [Unknown]
